FAERS Safety Report 25847854 (Version 1)
Quarter: 2025Q3

REPORT INFORMATION
  Report Type: Other
  Country: US (occurrence: US)
  Receive Date: 20250925
  Receipt Date: 20250925
  Transmission Date: 20251020
  Serious: No
  Sender: SIGMA TAU
  Company Number: US-LEADIANT BIOSCIENCES, INC.-2025LBI000040

PATIENT
  Sex: Female

DRUGS (2)
  1. MATULANE [Suspect]
     Active Substance: PROCARBAZINE HYDROCHLORIDE
     Indication: Brain neoplasm malignant
     Route: 048
     Dates: start: 20240814
  2. MATULANE [Suspect]
     Active Substance: PROCARBAZINE HYDROCHLORIDE
     Route: 048
     Dates: start: 20250814

REACTIONS (2)
  - Hypersensitivity [Unknown]
  - Product dose omission issue [Unknown]
